FAERS Safety Report 25101168 (Version 1)
Quarter: 2025Q1

REPORT INFORMATION
  Report Type: Spontaneous
  Country: GR (occurrence: GR)
  Receive Date: 20250320
  Receipt Date: 20250320
  Transmission Date: 20250409
  Serious: Yes (Death, Hospitalization, Other)
  Sender: KYOWA
  Company Number: GR-KYOWAKIRIN-2025KK005157

PATIENT

DRUGS (1)
  1. POTELIGEO [Suspect]
     Active Substance: MOGAMULIZUMAB-KPKC
     Indication: Cutaneous T-cell lymphoma
     Route: 065

REACTIONS (2)
  - Septic shock [Fatal]
  - Infection [Fatal]
